FAERS Safety Report 11009210 (Version 4)
Quarter: 2018Q1

REPORT INFORMATION
  Report Type: Spontaneous
  Country: US (occurrence: US)
  Receive Date: 20150410
  Receipt Date: 20180215
  Transmission Date: 20180508
  Serious: No
  Sender: FDA-Public Use
  Company Number: US-PFIZER INC-2015119908

PATIENT
  Age: 35 Year
  Sex: Female

DRUGS (1)
  1. DILANTIN [Suspect]
     Active Substance: PHENYTOIN
     Indication: SEIZURE
     Dosage: UNK
     Dates: start: 1988, end: 198912

REACTIONS (7)
  - Diplopia [Unknown]
  - Lethargy [Unknown]
  - Depression [Recovered/Resolved]
  - Poor quality sleep [Recovered/Resolved]
  - Malaise [Unknown]
  - Feeling drunk [Recovered/Resolved]
  - Dizziness [Unknown]

NARRATIVE: CASE EVENT DATE: 198911
